FAERS Safety Report 8417884-2 (Version None)
Quarter: 2012Q2

REPORT INFORMATION
  Report Type: 
  Country: None (occurrence: None)
  Receive Date: 20120607
  Receipt Date: 20120530
  Transmission Date: 20120825
  Serious: No
  Sender: FDA-Public Use
  Company Number: US-PFIZER INC-2012097854

PATIENT
  Sex: Female
  Weight: 85.261 kg

DRUGS (6)
  1. FLEXERIL [Concomitant]
     Indication: MUSCLE SPASMS
     Dosage: 10 MG, DAILY
     Dates: start: 20111201
  2. ATENOLOL [Concomitant]
     Indication: HYPERTENSION
     Dosage: 50 MG, DAILY
  3. IBUPROFEN (ADVIL) [Suspect]
     Indication: HEADACHE
  4. PRILOSEC [Concomitant]
     Indication: ABDOMINAL DISCOMFORT
     Dosage: 20 MG, DAILY
  5. IBUPROFEN (ADVIL) [Suspect]
     Indication: FIBROMYALGIA
     Dosage: 200MG TWO CAPSULES, DAILY
     Route: 048
     Dates: start: 20120101
  6. MAGNESIUM [Concomitant]
     Indication: MUSCLE SPASMS
     Dosage: 250 MG, DAILY

REACTIONS (2)
  - HEPATIC STEATOSIS [None]
  - POOR QUALITY DRUG ADMINISTERED [None]
